FAERS Safety Report 7211448-4 (Version None)
Quarter: 2011Q1

REPORT INFORMATION
  Report Type: 
  Country: None (occurrence: None)
  Receive Date: 20110105
  Receipt Date: 20101231
  Transmission Date: 20110831
  Serious: Yes (Death)
  Sender: FDA-Public Use
  Company Number: US-ASTRAZENECA-2011SE00180

PATIENT
  Age: 60 Year
  Sex: Female

DRUGS (8)
  1. BUPROPION [Suspect]
     Route: 048
  2. CLOPIDOGREL [Suspect]
     Route: 048
  3. TRAZODONE [Suspect]
     Route: 048
  4. LAMOTRIGINE [Suspect]
     Route: 048
  5. ACETAMINOPHEN [Suspect]
     Route: 048
  6. LORAZEPAM [Suspect]
     Route: 048
  7. LISINOPRIL [Suspect]
     Route: 048
  8. QUETIAPINE [Suspect]
     Route: 048

REACTIONS (2)
  - TOXICITY TO VARIOUS AGENTS [None]
  - COMPLETED SUICIDE [None]
